FAERS Safety Report 19929897 (Version 1)
Quarter: 2021Q4

REPORT INFORMATION
  Report Type: Spontaneous
  Country: CN (occurrence: CN)
  Receive Date: 20211007
  Receipt Date: 20211007
  Transmission Date: 20220303
  Serious: Yes (Other)
  Sender: FDA-Public Use
  Company Number: CN-ABBVIE-21K-035-4110247-00

PATIENT
  Age: 60 Year
  Sex: Male
  Weight: 66 kg

DRUGS (3)
  1. VALPROATE SODIUM [Suspect]
     Active Substance: VALPROATE SODIUM
     Indication: Epilepsy
     Dosage: PUMP INJECTION
     Route: 065
     Dates: start: 20181101, end: 20181105
  2. VALPROATE SODIUM [Suspect]
     Active Substance: VALPROATE SODIUM
     Indication: Epilepsy
     Route: 048
     Dates: start: 20181106, end: 20181106
  3. EDARAVONE [Suspect]
     Active Substance: EDARAVONE
     Indication: Cerebral disorder
     Route: 041
     Dates: start: 20181101, end: 20181106

REACTIONS (1)
  - Platelet count decreased [Recovering/Resolving]

NARRATIVE: CASE EVENT DATE: 20181101
